FAERS Safety Report 8740152 (Version 2)
Quarter: 2013Q4

REPORT INFORMATION
  Report Type: Spontaneous
  Country: CA (occurrence: CA)
  Receive Date: 20120823
  Receipt Date: 20131031
  Transmission Date: 20140711
  Serious: Yes (Hospitalization)
  Sender: FDA-Public Use
  Company Number: CA-009507513-1208CAN007520

PATIENT
  Age: 45 Year
  Sex: Female

DRUGS (1)
  1. JANUVIA [Suspect]
     Indication: PRODUCT USED FOR UNKNOWN INDICATION
     Dosage: 100 MG, UNK
     Route: 048

REACTIONS (2)
  - Hysterectomy [Recovered/Resolved]
  - Postoperative wound infection [Recovered/Resolved]
